FAERS Safety Report 6646149-4 (Version None)
Quarter: 2010Q1

REPORT INFORMATION
  Report Type: 
  Country: None (occurrence: None)
  Receive Date: 20100323
  Receipt Date: 20100316
  Transmission Date: 20100710
  Serious: Yes (Hospitalization)
  Sender: FDA-Public Use
  Company Number: US-TEVA-228221USA

PATIENT

DRUGS (2)
  1. TOPIRAMATE [Suspect]
     Route: 048
  2. SUMATRIPTAN SUCCINATE [Concomitant]
     Indication: MIGRAINE

REACTIONS (2)
  - MIGRAINE [None]
  - THERAPEUTIC RESPONSE UNEXPECTED WITH DRUG SUBSTITUTION [None]
